FAERS Safety Report 5890200-6 (Version None)
Quarter: 2008Q3

REPORT INFORMATION
  Report Type: 
  Country: None (occurrence: None)
  Receive Date: 20080919
  Receipt Date: 20080911
  Transmission Date: 20090109
  Serious: Yes (Other)
  Sender: FDA-Public Use
  Company Number: US-ABBOTT-08P-163-0474684-00

PATIENT
  Age: 48 Year
  Sex: Female

DRUGS (13)
  1. DEPAKENE [Suspect]
     Indication: DRUG USE FOR UNKNOWN INDICATION
     Route: 065
  2. DEPAKENE [Suspect]
     Route: 065
  3. HALOPERIDOL [Interacting]
     Indication: PARANOIA
     Route: 065
  4. HALOPERIDOL [Interacting]
     Route: 065
  5. CLONAZEPAM [Concomitant]
     Indication: ANXIETY
     Route: 048
  6. CLONAZEPAM [Concomitant]
     Route: 048
  7. RISPERIDONE [Concomitant]
     Indication: DRUG USE FOR UNKNOWN INDICATION
     Dosage: 50 MG 2 / MONTH
     Route: 028
  8. BENZTROPINE MESYLATE [Concomitant]
     Indication: DRUG USE FOR UNKNOWN INDICATION
     Route: 065
  9. QUETIAPINE [Concomitant]
     Indication: PARANOIA
     Route: 065
  10. QUETIAPINE [Concomitant]
     Indication: ABNORMAL BEHAVIOUR
  11. DIPHENHYDRAMINE HCL [Concomitant]
     Indication: DRUG USE FOR UNKNOWN INDICATION
     Route: 065
  12. ROBITUSSIN [Concomitant]
     Indication: COUGH
     Route: 065
  13. ROBITUSSIN [Concomitant]
     Indication: UPPER RESPIRATORY TRACT INFECTION

REACTIONS (11)
  - ANGER [None]
  - COGNITIVE DISORDER [None]
  - DELUSION [None]
  - DEMENTIA [None]
  - DISORIENTATION [None]
  - DRUG INTERACTION [None]
  - GAIT DISTURBANCE [None]
  - HALLUCINATION [None]
  - HIP FRACTURE [None]
  - LETHARGY [None]
  - NEUROLOGICAL EXAMINATION ABNORMAL [None]
